FAERS Safety Report 7269667-7 (Version None)
Quarter: 2011Q1

REPORT INFORMATION
  Report Type: 
  Country: None (occurrence: None)
  Receive Date: 20110124
  Receipt Date: 20110110
  Transmission Date: 20110831
  Serious: No
  Sender: FDA-Public Use
  Company Number: 2011-00007

PATIENT
  Age: 58 Year
  Sex: Female
  Weight: 81.6475 kg

DRUGS (5)
  1. FISH OIL [Concomitant]
  2. GLUCOVANCE [Concomitant]
  3. ZICAM COLD REMEDY ORAL MIST [Suspect]
     Dosage: 5 OR 6 HRS APART, 1 DAY
     Dates: start: 20110109, end: 20110110
  4. MULTI-VITAMIN [Concomitant]
  5. HYDROCHLOROTHIAZIDE [Concomitant]

REACTIONS (1)
  - AGEUSIA [None]
